FAERS Safety Report 14790658 (Version 1)
Quarter: 2018Q2

REPORT INFORMATION
  Report Type: Spontaneous
  Country: US (occurrence: US)
  Receive Date: 20180413
  Receipt Date: 20180413
  Transmission Date: 20180711
  Serious: No
  Sender: FDA-Public Use
  Company Number: None

PATIENT
  Age: 68 Year
  Sex: Female
  Weight: 91.17 kg

DRUGS (1)
  1. CAPECITABINE. [Suspect]
     Active Substance: CAPECITABINE
     Indication: RECTAL CANCER
     Dosage: 500MG 1TBIDFOR7DAYSON7DA MOUTH
     Route: 048
     Dates: start: 20170407

REACTIONS (2)
  - Haemorrhage [None]
  - Blood count abnormal [None]

NARRATIVE: CASE EVENT DATE: 20180228
